FAERS Safety Report 5232345-X (Version None)
Quarter: 2007Q1

REPORT INFORMATION
  Report Type: 
  Country: None (occurrence: None)
  Receive Date: 20070207
  Receipt Date: 20070124
  Transmission Date: 20070707
  Serious: Yes (Hospitalization)
  Sender: FDA-Public Use
  Company Number: HQWYE850121DEC06

PATIENT
  Sex: Female
  Weight: 65 kg

DRUGS (24)
  1. ENBREL [Suspect]
     Indication: RHEUMATOID ARTHRITIS
     Route: 058
     Dates: start: 20060529, end: 20061010
  2. ENBREL [Suspect]
     Route: 058
     Dates: start: 20061106
  3. GASTER [Concomitant]
     Route: 048
  4. SELBEX [Concomitant]
     Route: 048
  5. BLOPRESS [Concomitant]
     Route: 048
  6. ATENOLOL [Concomitant]
     Route: 048
  7. CALBLOCK [Concomitant]
     Route: 048
  8. FOSAMAX [Concomitant]
     Route: 048
  9. HAPSTAR [Concomitant]
     Indication: RHEUMATOID ARTHRITIS
     Dosage: UNKNOWN
  10. XYLOCAINE [Concomitant]
     Indication: RHEUMATOID ARTHRITIS
     Dosage: UNKNOWN
     Route: 061
  11. VOLTAREN [Concomitant]
     Indication: RHEUMATOID ARTHRITIS
     Dosage: UNKNOWN
     Route: 054
  12. CARDENALIN [Concomitant]
     Route: 048
  13. SG [Concomitant]
     Dosage: UNKNOWN
     Route: 048
  14. SP [Concomitant]
     Dosage: UNKNOWN
     Route: 048
     Dates: start: 20060627
  15. POVIDONE IODINE [Concomitant]
     Dosage: UNKNOWN
     Route: 048
  16. PREDONINE [Concomitant]
     Indication: RHEUMATOID ARTHRITIS
     Route: 048
  17. PREDNISOLONE [Concomitant]
     Indication: RHEUMATOID ARTHRITIS
     Dosage: UNKNOWN
     Route: 048
  18. PARIET [Concomitant]
     Dosage: UNKNOWN
     Route: 048
  19. BIOFERMIN [Concomitant]
     Dosage: UNKNOWN
     Route: 048
  20. CONIEL [Concomitant]
     Dosage: UNKNOWN
     Route: 048
  21. NITRODERM [Concomitant]
     Dosage: UNKNOWN
  22. NITROPEN [Concomitant]
     Dosage: UNKNOWN
     Route: 048
  23. EPATEC [Concomitant]
     Indication: RHEUMATOID ARTHRITIS
     Dosage: UNKNOWN
     Route: 061
  24. INFREE [Concomitant]
     Indication: RHEUMATOID ARTHRITIS
     Route: 048

REACTIONS (2)
  - CRYPTOGENIC ORGANISING PNEUMONIA [None]
  - PNEUMONIA [None]
